FAERS Safety Report 21172476 (Version 1)
Quarter: 2022Q3

REPORT INFORMATION
  Report Type: Spontaneous
  Country: US (occurrence: US)
  Receive Date: 20220804
  Receipt Date: 20220804
  Transmission Date: 20221026
  Serious: Yes (Other)
  Sender: FDA-Public Use
  Company Number: US-PFIZER INC-PV202200036664

PATIENT
  Sex: Male

DRUGS (3)
  1. INLYTA [Suspect]
     Active Substance: AXITINIB
     Dosage: 5 MG (INLYTA 5MG, LATER REDUCED TO 3)
  2. INLYTA [Suspect]
     Active Substance: AXITINIB
     Dosage: 5 MG (INLYTA 5MG, LATER REDUCED TO 3)
  3. PEMBROLIZUMAB [Concomitant]
     Active Substance: PEMBROLIZUMAB
     Dosage: UNK

REACTIONS (1)
  - Pancreatitis [Unknown]
